FAERS Safety Report 8048817-9 (Version None)
Quarter: 2012Q1

REPORT INFORMATION
  Report Type: 
  Country: None (occurrence: None)
  Receive Date: 20120110
  Receipt Date: 20111227
  Transmission Date: 20120608
  Serious: Yes (Hospitalization, Other)
  Sender: FDA-Public Use
  Company Number: 2012MA000037

PATIENT
  Age: 8 Year
  Sex: Male

DRUGS (6)
  1. TOPOTECAN [Suspect]
     Indication: NEUROBLASTOMA
     Dosage: PO
     Route: 048
  2. TEMOZOLOMIDE [Suspect]
     Indication: NEUROBLASTOMA
  3. CYCLOPHOSPHAMIDE [Suspect]
     Indication: NEUROBLASTOMA
  4. IRINOTECAN HYDROCHLORIDE [Suspect]
     Indication: NEUROBLASTOMA
     Dosage: IV
     Route: 042
  5. BEVACIZUMAB (BEVACIZUMAB) [Suspect]
     Indication: NEUROBLASTOMA
     Dosage: 10 MG/KG;Q2W
  6. GEFITINIB (GIFITINIB) [Suspect]
     Indication: NEUROBLASTOMA

REACTIONS (3)
  - POSTERIOR REVERSIBLE ENCEPHALOPATHY SYNDROME [None]
  - HYPERTENSION [None]
  - GRAND MAL CONVULSION [None]
